FAERS Safety Report 6085624-0 (Version None)
Quarter: 2009Q1

REPORT INFORMATION
  Report Type: 
  Country: None (occurrence: None)
  Receive Date: 20090220
  Receipt Date: 20090209
  Transmission Date: 20090719
  Serious: Yes (Death)
  Sender: FDA-Public Use
  Company Number: CH-AVENTIS-200911495GDDC

PATIENT

DRUGS (17)
  1. GLIBENCLAMIDE [Suspect]
     Route: 048
  2. METFORMIN [Suspect]
     Route: 048
  3. TOLBUTAMIDE [Suspect]
     Route: 048
  4. GLIMEPIRIDE [Suspect]
     Route: 048
  5. GLICLAZIDE [Suspect]
  6. GLIPIZIDE [Suspect]
     Route: 048
  7. GLIBORNURIDE [Suspect]
     Route: 048
  8. GLIQUIDONE [Suspect]
     Route: 048
  9. CHLORPROPAMIDE [Suspect]
     Route: 048
  10. TOLAZAMIDE [Suspect]
     Route: 048
  11. ACETOHEXAMIDE [Suspect]
     Route: 048
  12. PIOGLITAZONE [Suspect]
     Route: 048
  13. ROSIGLITAZONE [Suspect]
     Route: 048
  14. TROGLITAZONE [Suspect]
     Route: 048
  15. ACARBOSE [Suspect]
     Route: 048
  16. REPAGLINIDE [Suspect]
     Route: 048
  17. NATEGLINIDE [Suspect]
     Route: 048

REACTIONS (1)
  - HYPOGLYCAEMIA [None]
